FAERS Safety Report 4422349-9 (Version None)
Quarter: 2004Q3

REPORT INFORMATION
  Report Type: 
  Country: None (occurrence: None)
  Receive Date: 20040810
  Receipt Date: 20040730
  Transmission Date: 20050211
  Serious: Yes (Hospitalization)
  Sender: FDA-Public Use
  Company Number: CH-BRISTOL-MYERS SQUIBB COMPANY-12657342

PATIENT
  Age: 43 Year
  Sex: Female
  Weight: 41 kg

DRUGS (7)
  1. METHOTREXATE-FARMOS TABS [Suspect]
     Indication: POLYMYALGIA RHEUMATICA
     Route: 048
     Dates: start: 20040216, end: 20040528
  2. METHOTREXATE-FARMOS TABS [Interacting]
     Indication: SYSTEMIC LUPUS ERYTHEMATOSUS
     Route: 048
     Dates: start: 20040216, end: 20040528
  3. PREDNISONE TAB [Interacting]
     Indication: POLYMYALGIA RHEUMATICA
     Dosage: 2 COURSES 15 MG DECREASING DOSE
     Route: 048
     Dates: start: 20040201, end: 20040401
  4. PREDNISONE TAB [Interacting]
     Indication: SYSTEMIC LUPUS ERYTHEMATOSUS
     Dosage: 2 COURSES 15 MG DECREASING DOSE
     Route: 048
     Dates: start: 20040201, end: 20040401
  5. CHLOROCHIN [Interacting]
     Indication: POLYMYALGIA RHEUMATICA
     Dosage: 150 MG TABLET
     Route: 048
     Dates: start: 20040216
  6. CHLOROCHIN [Interacting]
     Indication: SYSTEMIC LUPUS ERYTHEMATOSUS
     Dosage: 150 MG TABLET
     Route: 048
     Dates: start: 20040216
  7. FOLIC ACID [Concomitant]
     Dosage: GIVEN AS METHOTREXATE ANTIDOTE
     Dates: start: 20040216

REACTIONS (2)
  - DRUG INTERACTION [None]
  - PULMONARY TUBERCULOSIS [None]
